FAERS Safety Report 16732223 (Version 4)
Quarter: 2020Q1

REPORT INFORMATION
  Report Type: Report from Study
  Country: US (occurrence: US)
  Receive Date: 20190822
  Receipt Date: 20200103
  Transmission Date: 20200409
  Serious: Yes (Hospitalization)
  Sender: FDA-Public Use
  Company Number: PHEH2019US034309

PATIENT
  Age: 55 Year
  Sex: Female

DRUGS (3)
  1. TREPROSTINIL. [Suspect]
     Active Substance: TREPROSTINIL
     Indication: PULMONARY ARTERIAL HYPERTENSION
     Dosage: UNK (38NG/KG/MIN, CONTINUOUS)
     Route: 041
     Dates: start: 201901
  2. SILDENAFIL. [Concomitant]
     Active Substance: SILDENAFIL
     Indication: PRODUCT USED FOR UNKNOWN INDICATION
     Dosage: UNK
     Route: 065
  3. TREPROSTINIL. [Suspect]
     Active Substance: TREPROSTINIL
     Dosage: UNK (33NG/KG/MIN, CONTINUOUS)
     Route: 041
     Dates: start: 20190614

REACTIONS (7)
  - Catheter site haemorrhage [Unknown]
  - Nausea [Unknown]
  - Gastrooesophageal reflux disease [Unknown]
  - Infusion site thrombosis [Unknown]
  - Fluid retention [Unknown]
  - Pain [Unknown]
  - Chest pain [Unknown]

NARRATIVE: CASE EVENT DATE: 20190814
